FAERS Safety Report 5695297-4 (Version None)
Quarter: 2008Q2

REPORT INFORMATION
  Report Type: 
  Country: None (occurrence: None)
  Receive Date: 20080404
  Receipt Date: 20080325
  Transmission Date: 20081010
  Serious: Yes (Other)
  Sender: FDA-Public Use
  Company Number: BR-PFIZER INC-2008028131

PATIENT
  Age: 42 Year
  Sex: Female

DRUGS (12)
  1. DEPO-PROVERA SUSPENSION/INJ [Suspect]
     Indication: OFF LABEL USE
     Dates: start: 20080201, end: 20080201
  2. DEPO-PROVERA SUSPENSION/INJ [Suspect]
     Indication: MENSTRUAL DISCOMFORT
  3. DEPO-PROVERA SUSPENSION/INJ [Suspect]
     Indication: PREMENSTRUAL SYNDROME
  4. FLUOXETINE [Concomitant]
     Indication: DEPRESSION
     Route: 065
  5. RIVOTRIL [Concomitant]
     Route: 065
  6. PREDNISONE [Concomitant]
     Route: 065
  7. CAPTOPRIL [Concomitant]
     Indication: HYPERTENSION
     Route: 065
  8. ATENOL [Concomitant]
     Indication: HYPERTENSION
     Route: 065
  9. CLORANA [Concomitant]
     Indication: HYPERTENSION
     Route: 065
  10. PHENYTOIN [Concomitant]
     Route: 065
  11. IMIPRAMINE [Concomitant]
     Indication: DEPRESSION
     Route: 065
  12. HOMEOPATHIC PREPARATION [Concomitant]
     Route: 065

REACTIONS (3)
  - CUTANEOUS LUPUS ERYTHEMATOSUS [None]
  - DRUG INEFFECTIVE FOR UNAPPROVED INDICATION [None]
  - PYREXIA [None]
